FAERS Safety Report 8575788-9 (Version None)
Quarter: 2012Q3

REPORT INFORMATION
  Report Type: 
  Country: None (occurrence: None)
  Receive Date: 20120807
  Receipt Date: 20120723
  Transmission Date: 20120928
  Serious: No
  Sender: FDA-Public Use
  Company Number: US-009507513-1207USA009276

PATIENT

DRUGS (7)
  1. VICTRELIS [Suspect]
     Dosage: 800 MG, TID (EVERY 7-9 HOURS WITH FOOD)
     Route: 048
  2. REBETOL [Suspect]
  3. PEGASYS [Suspect]
  4. BUPROPION HYDROCHLORIDE [Concomitant]
  5. MINERALS (UNSPECIFIED) [Concomitant]
  6. VITAMINS (UNSPECIFIED) [Concomitant]
  7. ASCORBIC ACID [Concomitant]

REACTIONS (1)
  - PLATELET COUNT DECREASED [None]
